FAERS Safety Report 18425208 (Version 1)
Quarter: 2020Q4

REPORT INFORMATION
  Report Type: Spontaneous
  Country: IT (occurrence: IT)
  Receive Date: 20201026
  Receipt Date: 20201026
  Transmission Date: 20210114
  Serious: Yes (Other)
  Sender: FDA-Public Use
  Company Number: NVSC2020IT282386

PATIENT
  Age: 69 Year
  Sex: Male

DRUGS (1)
  1. VOTRIENT [Suspect]
     Active Substance: PAZOPANIB HYDROCHLORIDE
     Indication: METASTATIC NEOPLASM
     Dosage: 800 MG, QD
     Route: 048
     Dates: start: 20200222, end: 20200224

REACTIONS (5)
  - Gravitational oedema [Recovering/Resolving]
  - Asthenia [Recovering/Resolving]
  - Pneumonitis [Recovering/Resolving]
  - Drug-induced liver injury [Recovering/Resolving]
  - Ejection fraction decreased [Recovering/Resolving]

NARRATIVE: CASE EVENT DATE: 20200225
